FAERS Safety Report 8432427-5 (Version None)
Quarter: 2012Q2

REPORT INFORMATION
  Report Type: 
  Country: None (occurrence: None)
  Receive Date: 20120607
  Receipt Date: 20120601
  Transmission Date: 20120825
  Serious: Yes (Other)
  Sender: FDA-Public Use
  Company Number: AUR-APL-2012-02480

PATIENT
  Age: 58 Year
  Sex: Male

DRUGS (12)
  1. KEPPRA [Suspect]
     Indication: PRODUCT USED FOR UNKNOWN INDICATION
     Dosage: ORAL
     Route: 048
     Dates: start: 20120406, end: 20120418
  2. SENNA (SENNA ALEXANDRIA) [Concomitant]
  3. LANSOPRAZOLE [Concomitant]
  4. ASPIRIN [Concomitant]
  5. CLENIL MODULITE (BECLOMETASONE DIPROPIONATE) [Concomitant]
  6. WARFARIN SODIUM [Concomitant]
  7. LAMOTRIGINE [Suspect]
     Indication: PRODUCT USED FOR UNKNOWN INDICATION
     Dosage: ORAL
     Route: 048
     Dates: start: 20120413, end: 20120522
  8. ENALAPRIL MALEATE [Concomitant]
  9. METFFORMIN HYDROCHLORIDE [Concomitant]
  10. LACTULOSE [Concomitant]
  11. ROSUVASTATIN [Concomitant]
  12. ALBUTEROL SULFATE [Concomitant]

REACTIONS (4)
  - LIVER FUNCTION TEST ABNORMAL [None]
  - HALLUCINATION [None]
  - RASH MACULO-PAPULAR [None]
  - DRUG RASH WITH EOSINOPHILIA AND SYSTEMIC SYMPTOMS [None]
